FAERS Safety Report 9163154 (Version 1)
Quarter: 2013Q1

REPORT INFORMATION
  Report Type: Spontaneous
  Country: US (occurrence: US)
  Receive Date: 20130314
  Receipt Date: 20130314
  Transmission Date: 20140127
  Serious: No
  Sender: FDA-Public Use
  Company Number: US-TEVA-392054USA

PATIENT
  Sex: Female

DRUGS (3)
  1. PLAN B ONE-STEP [Suspect]
     Indication: POST COITAL CONTRACEPTION
     Dosage: 1.5 MILLIGRAM DAILY;
     Route: 048
     Dates: start: 20130225, end: 20130225
  2. AMOXICILLIN [Concomitant]
     Indication: INFECTION
  3. LORAZEPAM [Concomitant]
     Indication: ANXIETY

REACTIONS (4)
  - Back pain [Not Recovered/Not Resolved]
  - Vaginal discharge [Not Recovered/Not Resolved]
  - Menstruation irregular [Recovered/Resolved]
  - Abdominal pain [Not Recovered/Not Resolved]
